FAERS Safety Report 12395874 (Version 1)
Quarter: 2016Q2

REPORT INFORMATION
  Report Type: Spontaneous
  Country: US (occurrence: US)
  Receive Date: 20160523
  Receipt Date: 20160523
  Transmission Date: 20160815
  Serious: No
  Sender: FDA-Public Use
  Company Number: US-ASTRAZENECA-2016SE41585

PATIENT
  Sex: Male

DRUGS (1)
  1. SYMBICORT [Suspect]
     Active Substance: BUDESONIDE\FORMOTEROL FUMARATE DIHYDRATE
     Indication: ASTHMA
     Dosage: 160-4.5 MCG,1 PUFF, EVERY 12 HOURS
     Route: 055
     Dates: start: 201602, end: 20160315

REACTIONS (3)
  - Oral candidiasis [Unknown]
  - Off label use [Unknown]
  - Erythema [Unknown]

NARRATIVE: CASE EVENT DATE: 2016
